FAERS Safety Report 18972961 (Version 1)
Quarter: 2021Q1

REPORT INFORMATION
  Report Type: Spontaneous
  Country: SE (occurrence: SE)
  Receive Date: 20210305
  Receipt Date: 20210305
  Transmission Date: 20210420
  Serious: Yes (Hospitalization)
  Sender: FDA-Public Use
  Company Number: SE-ACCORD-218929

PATIENT
  Age: 83 Year
  Sex: Female

DRUGS (10)
  1. ELIQUIS [Suspect]
     Active Substance: APIXABAN
     Indication: ATRIAL FIBRILLATION
     Dosage: 2.5 MG FILM?COATED TABLET
     Route: 048
     Dates: start: 20201006, end: 20210114
  2. ONDANSETRON [Concomitant]
     Active Substance: ONDANSETRON
     Dates: start: 20201223
  3. BISOPROLOL [Concomitant]
     Active Substance: BISOPROLOL
     Dates: start: 20190226
  4. OXIS [Concomitant]
     Active Substance: FORMOTEROL FUMARATE
     Dosage: 1X1 + AS REQUIRED, TURBOHALER 9 MICROGRAMS / DOSE INHALATION POWDER
  5. BUDESONIDE. [Concomitant]
     Active Substance: BUDESONIDE
     Dosage: TURBOHALER 400 MICROGRAMS / DOSE INHALATION POWDER
  6. SERTRALINE [Suspect]
     Active Substance: SERTRALINE HYDROCHLORIDE
     Indication: DEPRESSION
     Route: 048
     Dates: start: 20210105, end: 20210107
  7. BRICANYL [Concomitant]
     Active Substance: TERBUTALINE SULFATE
     Dosage: TURBOHALER 0.5 MG / DOSE INHALATION POWDER
  8. LACTULOSE. [Concomitant]
     Active Substance: LACTULOSE
     Dosage: AS REQUIRED
  9. LETROZOLE. [Concomitant]
     Active Substance: LETROZOLE
     Dates: start: 20201116
  10. ZOPICLONE [Concomitant]
     Active Substance: ZOPICLONE
     Dates: start: 20191230

REACTIONS (1)
  - Subdural haematoma [Not Recovered/Not Resolved]

NARRATIVE: CASE EVENT DATE: 20210114
